FAERS Safety Report 5098718-3 (Version None)
Quarter: 2006Q3

REPORT INFORMATION
  Report Type: 
  Country: None (occurrence: None)
  Receive Date: 20060905
  Receipt Date: 20060814
  Transmission Date: 20061208
  Serious: Yes (Other)
  Sender: FDA-Public Use
  Company Number: WW ISSUE 13

PATIENT
  Age: 12 Year
  Sex: Female

DRUGS (3)
  1. CHLOROQUINE PHOSPHATE [Suspect]
     Indication: GLIOMA
     Dosage: 500MG AFTER 6H 250MG/DY
  2. CHLOROQUINE PHOSPHATE [Suspect]
     Indication: PROPHYLAXIS
     Dosage: 500MG AFTER 6H 250MG/DY
  3. RADIOTHERAPY [Concomitant]

REACTIONS (4)
  - DERMATITIS BULLOUS [None]
  - PHOTOSENSITIVITY REACTION [None]
  - SKIN EXFOLIATION [None]
  - VITILIGO [None]
